FAERS Safety Report 23981816 (Version 2)
Quarter: 2024Q2

REPORT INFORMATION
  Report Type: Spontaneous
  Country: JP (occurrence: JP)
  Receive Date: 20240617
  Receipt Date: 20240619
  Transmission Date: 20240715
  Serious: Yes (Other)
  Sender: FDA-Public Use
  Company Number: JP-PFIZER INC-PV202400076173

PATIENT
  Age: 56 Year
  Sex: Female

DRUGS (1)
  1. MEDROXYPROGESTERONE ACETATE [Suspect]
     Active Substance: MEDROXYPROGESTERONE ACETATE
     Indication: Endometrial stromal sarcoma
     Dosage: 600 MG, DAILY

REACTIONS (2)
  - Diabetes mellitus [Recovering/Resolving]
  - Off label use [Unknown]
